FAERS Safety Report 17132979 (Version 2)
Quarter: 2019Q4

REPORT INFORMATION
  Report Type: Spontaneous
  Country: FR (occurrence: FR)
  Receive Date: 20191210
  Receipt Date: 20191217
  Transmission Date: 20200122
  Serious: Yes (Death)
  Sender: FDA-Public Use
  Company Number: FR-ROCHE-2487790

PATIENT
  Age: 45 Year
  Sex: Male

DRUGS (1)
  1. OCREVUS [Suspect]
     Active Substance: OCRELIZUMAB
     Indication: RELAPSING-REMITTING MULTIPLE SCLEROSIS
     Dosage: (INFUSION DAY 1)
     Route: 042
     Dates: start: 20191113, end: 20191113

REACTIONS (1)
  - Death [Fatal]

NARRATIVE: CASE EVENT DATE: 20191117
